FAERS Safety Report 5093684-9 (Version None)
Quarter: 2006Q3

REPORT INFORMATION
  Report Type: 
  Country: None (occurrence: None)
  Receive Date: 20060829
  Receipt Date: 20060814
  Transmission Date: 20061208
  Serious: Yes (Hospitalization, Other)
  Sender: FDA-Public Use
  Company Number: US200607003042

PATIENT
  Age: 76 Year
  Sex: Female

DRUGS (9)
  1. FORTEO [Suspect]
     Indication: OSTEOPOROSIS
     Dates: start: 20060501
  2. PRILOSEC [Concomitant]
  3. PAXIL [Concomitant]
  4. ULTRAM [Concomitant]
  5. CELEBREX [Concomitant]
  6. TYLOX (OXYCODONE HYDROCHLORIDE, PARACETAMOL) [Concomitant]
  7. FORTEO PEN (FORTEO PEN) PEN, DISPOSABLE [Concomitant]
  8. VITAMIN D [Concomitant]
  9. PRINIVIL [Concomitant]

REACTIONS (7)
  - BALANCE DISORDER [None]
  - BLOOD PRESSURE ORTHOSTATIC DECREASED [None]
  - FACIAL BONES FRACTURE [None]
  - FALL [None]
  - MUSCLE SPASMS [None]
  - PELVIC FRACTURE [None]
  - PHARMACEUTICAL PRODUCT COMPLAINT [None]
